FAERS Safety Report 7122937-5 (Version None)
Quarter: 2010Q4

REPORT INFORMATION
  Report Type: 
  Country: None (occurrence: None)
  Receive Date: 20101124
  Receipt Date: 20101122
  Transmission Date: 20110411
  Serious: Yes (Death, Hospitalization)
  Sender: FDA-Public Use
  Company Number: US-CELGENEUS-163-21880-10090901

PATIENT
  Sex: Female

DRUGS (10)
  1. REVLIMID [Suspect]
     Indication: MULTIPLE MYELOMA
     Route: 048
     Dates: start: 20100602, end: 20100811
  2. ARANESP [Suspect]
     Route: 058
  3. PROCRIT [Suspect]
     Route: 065
  4. NEUPOGEN [Suspect]
     Route: 065
  5. MACROBID [Concomitant]
     Route: 048
     Dates: start: 20100624, end: 20100811
  6. DURAGESIC-100 [Concomitant]
     Route: 061
     Dates: start: 20100811
  7. GABAPENTIN [Concomitant]
     Route: 048
     Dates: start: 20100701, end: 20100811
  8. NARCAN [Concomitant]
     Route: 065
  9. CIPRO [Concomitant]
     Route: 065
  10. ZOSYN [Concomitant]

REACTIONS (5)
  - ASTHENIA [None]
  - BACK PAIN [None]
  - CEREBROVASCULAR ACCIDENT [None]
  - MALAISE [None]
  - URINARY TRACT INFECTION [None]
